FAERS Safety Report 14699334 (Version 1)
Quarter: 2018Q1

REPORT INFORMATION
  Report Type: Spontaneous
  Country: CH (occurrence: CH)
  Receive Date: 20180330
  Receipt Date: 20180330
  Transmission Date: 20180509
  Serious: Yes (Hospitalization)
  Sender: FDA-Public Use
  Company Number: CH-NOVOPROD-592126

PATIENT
  Age: 48 Year
  Sex: Female

DRUGS (8)
  1. ASPIRIN CARDIO [Concomitant]
     Active Substance: ASPIRIN
     Dosage: 100 MG, QD(IN THE MORNING (1-0-0-0))
  2. CANDESARTAN. [Concomitant]
     Active Substance: CANDESARTAN
     Dosage: 4 MG, QD(IN THE MORNING (1-0-0-0))
  3. NOVORAPID [Suspect]
     Active Substance: INSULIN ASPART
     Indication: TYPE 2 DIABETES MELLITUS
     Dosage: IN THE LAST DAY NOT INJECTED AS NORMOGLYCEMIA  DUE TO NORMOGYCAEMIA
     Route: 051
     Dates: end: 201803
  4. TRESIBA PENFILL [Suspect]
     Active Substance: INSULIN DEGLUDEC
     Indication: TYPE 2 DIABETES MELLITUS
     Dosage: 20 IU, QD(20 IU EVENING)
     Route: 051
     Dates: start: 201803
  5. CRESTOR [Concomitant]
     Active Substance: ROSUVASTATIN CALCIUM
     Dosage: 20 MG, QD(IN THE MORNING (1-0-0-0))
  6. TRESIBA PENFILL [Suspect]
     Active Substance: INSULIN DEGLUDEC
     Dosage: REDUCED TO 4IU
     Route: 051
  7. TRESIBA PENFILL [Suspect]
     Active Substance: INSULIN DEGLUDEC
     Dosage: REDUCED TO 2IU
     Route: 051
     Dates: end: 20180307
  8. JARDIANCE [Suspect]
     Active Substance: EMPAGLIFLOZIN
     Indication: TYPE 2 DIABETES MELLITUS
     Dosage: 10 MG, QD
     Route: 048
     Dates: start: 2017, end: 20180307

REACTIONS (4)
  - Hypoglycaemia [Recovered/Resolved]
  - Diabetic ketoacidosis [Recovered/Resolved]
  - Prerenal failure [Recovered/Resolved]
  - Dehydration [Recovered/Resolved]

NARRATIVE: CASE EVENT DATE: 20180307
